FAERS Safety Report 19463213 (Version 1)
Quarter: 2021Q2

REPORT INFORMATION
  Report Type: Report from Study
  Country: US (occurrence: US)
  Receive Date: 20210625
  Receipt Date: 20210625
  Transmission Date: 20210717
  Serious: No
  Sender: FDA-Public Use
  Company Number: NVSC2021US142846

PATIENT
  Sex: Male

DRUGS (1)
  1. ENTRESTO [Suspect]
     Active Substance: SACUBITRIL\VALSARTAN
     Indication: CARDIAC FAILURE
     Dosage: 97/103 MG (SACUBITRIL 97.2 MG, VALSARTAN 102.8 MG) BID
     Route: 065
     Dates: start: 20210428

REACTIONS (2)
  - Cough [Unknown]
  - Nasopharyngitis [Recovering/Resolving]
